FAERS Safety Report 17823426 (Version 2)
Quarter: 2020Q2

REPORT INFORMATION
  Report Type: Spontaneous
  Country: BE (occurrence: BE)
  Receive Date: 20200526
  Receipt Date: 20200610
  Transmission Date: 20200714
  Serious: Yes (Disabling)
  Sender: FDA-Public Use
  Company Number: BE-009507513-2005BEL006250

PATIENT
  Age: 29 Year
  Sex: Male

DRUGS (1)
  1. PREGNYL [Suspect]
     Active Substance: CHORIOGONADOTROPIN ALFA
     Indication: GROWTH RETARDATION
     Dosage: FORMULATION: POWDER AND SOLVENT FOR SOLUTION FOR INJECTION; 2X/WEEK, FOR 2X 6 WEEKS IN 2006, 2 COURS
     Route: 030

REACTIONS (2)
  - Bone infarction [Recovered/Resolved with Sequelae]
  - Osteonecrosis [Recovered/Resolved with Sequelae]

NARRATIVE: CASE EVENT DATE: 201909
